FAERS Safety Report 9805475 (Version 1)
Quarter: 2014Q1

REPORT INFORMATION
  Report Type: Spontaneous
  Country: US (occurrence: None)
  Receive Date: 20140108
  Receipt Date: 20140108
  Transmission Date: 20141002
  Serious: Yes (Other)
  Sender: FDA-Public Use
  Company Number: None

PATIENT
  Sex: Female

DRUGS (1)
  1. TIZANIDINE [Suspect]
     Indication: ARTHRALGIA
     Dosage: 2 TABS @ BEDTIME TWICE DAILY TAKEN BY MOUTH
     Route: 048
     Dates: start: 20131122, end: 20140106

REACTIONS (6)
  - Drug ineffective [None]
  - Nausea [None]
  - Nightmare [None]
  - Screaming [None]
  - Abnormal dreams [None]
  - Product quality issue [None]
